FAERS Safety Report 7183335-1 (Version None)
Quarter: 2010Q4

REPORT INFORMATION
  Report Type: 
  Country: None (occurrence: None)
  Receive Date: 20101220
  Receipt Date: 20101220
  Transmission Date: 20110411
  Serious: Yes (Hospitalization)
  Sender: FDA-Public Use
  Company Number: None

PATIENT
  Age: 49 Year
  Sex: Female
  Weight: 88.6 kg

DRUGS (3)
  1. IBUPROFEN [Suspect]
     Indication: TOOTHACHE
     Dosage: 800 MG 5XDAY PM PO RECENT
     Route: 048
  2. ASPIRIN [Suspect]
     Indication: TOOTHACHE
     Dosage: PO RECENT
     Route: 048
  3. TREXIMET [Concomitant]

REACTIONS (5)
  - DIZZINESS [None]
  - DYSPNOEA [None]
  - GASTRIC ULCER [None]
  - PRESYNCOPE [None]
  - UPPER GASTROINTESTINAL HAEMORRHAGE [None]
